FAERS Safety Report 8263884-5 (Version None)
Quarter: 2012Q2

REPORT INFORMATION
  Report Type: 
  Country: None (occurrence: None)
  Receive Date: 20120405
  Receipt Date: 20120203
  Transmission Date: 20120825
  Serious: Yes (Other)
  Sender: FDA-Public Use
  Company Number: PHEH2011US012804

PATIENT
  Sex: Male

DRUGS (2)
  1. GLEEVEC [Suspect]
     Dosage: 400 MG, DAILY
     Route: 048
     Dates: end: 20120101
  2. GLEEVEC [Suspect]
     Indication: CHRONIC MYELOID LEUKAEMIA
     Dosage: 400 MG, DAILY
     Route: 048
     Dates: start: 20111019

REACTIONS (2)
  - HEPATITIS VIRAL [None]
  - HEPATIC ENZYME INCREASED [None]
